FAERS Safety Report 7763049-7 (Version None)
Quarter: 2011Q3

REPORT INFORMATION
  Report Type: 
  Country: None (occurrence: None)
  Receive Date: 20110920
  Receipt Date: 20110912
  Transmission Date: 20111222
  Serious: Yes (Other)
  Sender: FDA-Public Use
  Company Number: JP-ASTRAZENECA-2011SE51075

PATIENT
  Age: 88 Year
  Sex: Male

DRUGS (3)
  1. TIARYL [Concomitant]
     Indication: RESTLESSNESS
     Route: 048
     Dates: start: 20110610
  2. SEROQUEL [Suspect]
     Indication: DRUG THERAPY
     Route: 048
     Dates: start: 20110810
  3. YOKUKAN-SAN [Concomitant]
     Indication: IRRITABILITY
     Route: 048
     Dates: start: 20110620

REACTIONS (3)
  - OFF LABEL USE [None]
  - ASTHENIA [None]
  - ALTERED STATE OF CONSCIOUSNESS [None]
